FAERS Safety Report 10255428 (Version 1)
Quarter: 2014Q2

REPORT INFORMATION
  Report Type: Spontaneous
  Country: US (occurrence: None)
  Receive Date: 20140620
  Receipt Date: 20140620
  Transmission Date: 20141212
  Serious: Yes (Death)
  Sender: FDA-Public Use
  Company Number: UNT-2014-002369

PATIENT
  Age: 68 Year
  Sex: Male

DRUGS (2)
  1. TYVASO [Suspect]
     Indication: PULMONARY ARTERIAL HYPERTENSION
     Dosage: 18-54 MCG, QID, INHALATION
     Route: 055
     Dates: start: 20140312
  2. MACITENTAN (MACITENTAN) [Concomitant]

REACTIONS (1)
  - Death [None]
